FAERS Safety Report 5455957-7 (Version None)
Quarter: 2007Q3

REPORT INFORMATION
  Report Type: 
  Country: None (occurrence: None)
  Receive Date: 20070914
  Receipt Date: 20070914
  Transmission Date: 20080115
  Serious: No
  Sender: FDA-Public Use
  Company Number: None

PATIENT
  Sex: Female
  Weight: 86.1834 kg

DRUGS (1)
  1. WELLBUTRIN SR [Suspect]
     Indication: MAJOR DEPRESSION
     Dosage: 150 MG  B.I.D.  PO
     Route: 048
     Dates: start: 20001220, end: 20010109

REACTIONS (3)
  - IDIOPATHIC URTICARIA [None]
  - REACTION TO DRUG EXCIPIENTS [None]
  - URTICARIA [None]
